FAERS Safety Report 9449763 (Version 1)
Quarter: 2013Q3

REPORT INFORMATION
  Report Type: Report from Study
  Country: KR (occurrence: KR)
  Receive Date: 20130809
  Receipt Date: 20130809
  Transmission Date: 20140515
  Serious: Yes (Death, Hospitalization)
  Sender: FDA-Public Use
  Company Number: KR-SANOFI-AVENTIS-2013SA077388

PATIENT
  Age: 67 Year
  Sex: Female

DRUGS (1)
  1. LANTUS [Suspect]
     Indication: BLOOD GLUCOSE FLUCTUATION
     Dosage: DOSE:14 UNIT(S)
     Route: 058

REACTIONS (2)
  - Pancreatic carcinoma [Fatal]
  - Condition aggravated [Fatal]
